FAERS Safety Report 4746485-2 (Version None)
Quarter: 2005Q3

REPORT INFORMATION
  Report Type: 
  Country: None (occurrence: None)
  Receive Date: 20050817
  Receipt Date: 20050809
  Transmission Date: 20060218
  Serious: Yes (Other)
  Sender: FDA-Public Use
  Company Number: NO-JNJFOC-20050705702

PATIENT
  Age: 69 Year

DRUGS (10)
  1. REMICADE [Suspect]
     Indication: RHEUMATOID ARTHRITIS
     Dosage: 22 INFUSIONS.
     Route: 042
  2. METHOTREXATE [Concomitant]
     Dosage: EVERY FRIDAY
     Route: 065
  3. PREDNISOLONE [Concomitant]
     Route: 065
  4. FOSAMAX [Concomitant]
     Route: 065
  5. CALCIGRAN FORTE [Concomitant]
     Route: 065
  6. CALCIGRAN FORTE [Concomitant]
     Route: 065
  7. CALCIGRAN FORTE [Concomitant]
     Route: 065
  8. CALCIGRAN FORTE [Concomitant]
     Route: 065
  9. CELEBRA [Concomitant]
     Route: 065
  10. ZOPLICONE [Concomitant]
     Route: 065

REACTIONS (3)
  - SMALL CELL LUNG CANCER STAGE UNSPECIFIED [None]
  - SUPERIOR VENA CAVAL OCCLUSION [None]
  - SWELLING FACE [None]
